FAERS Safety Report 21597218 (Version 4)
Quarter: 2023Q2

REPORT INFORMATION
  Report Type: Spontaneous
  Country: US (occurrence: US)
  Receive Date: 20221115
  Receipt Date: 20230626
  Transmission Date: 20230722
  Serious: No
  Sender: FDA-Public Use
  Company Number: US-PFIZER INC-202201296815

PATIENT
  Age: 44 Year
  Sex: Female

DRUGS (6)
  1. BOSULIF [Suspect]
     Active Substance: BOSUTINIB MONOHYDRATE
     Dosage: 100 MG, 1X/DAY(1DF)
     Route: 048
     Dates: start: 20221110
  2. BOSULIF [Suspect]
     Active Substance: BOSUTINIB MONOHYDRATE
     Dosage: 200 MG, DAILY (FOR 7 DAYS)
  3. BOSULIF [Suspect]
     Active Substance: BOSUTINIB MONOHYDRATE
     Dosage: 300 MG, DAILY  (FOR 7 DAYS)
  4. BOSULIF [Suspect]
     Active Substance: BOSUTINIB MONOHYDRATE
     Dosage: 400 MG, DAILY (TAKE 1 TABLET ONCE DAILY)
     Route: 048
     Dates: start: 20221110
  5. BOSULIF [Suspect]
     Active Substance: BOSUTINIB MONOHYDRATE
     Dosage: 300 MG, 1X/DAY (TAKE 3 TABLETS ONCE A DAY)
     Dates: start: 20221110
  6. SPRYCEL [Concomitant]
     Active Substance: DASATINIB
     Dosage: 100 MG

REACTIONS (6)
  - Neoplasm progression [Not Recovered/Not Resolved]
  - Lactose intolerance [Unknown]
  - Oral herpes [Unknown]
  - Insomnia [Unknown]
  - Infection [Recovered/Resolved]
  - COVID-19 [Recovered/Resolved]

NARRATIVE: CASE EVENT DATE: 20221101
